FAERS Safety Report 9458907 (Version 1)
Quarter: 2013Q3

REPORT INFORMATION
  Report Type: Spontaneous
  Country: CN (occurrence: CN)
  Receive Date: 20130814
  Receipt Date: 20130814
  Transmission Date: 20140515
  Serious: Yes (Death)
  Sender: FDA-Public Use
  Company Number: CN-GLAXOSMITHKLINE-B0914889A

PATIENT
  Age: 58 Year
  Sex: Female

DRUGS (1)
  1. HEPTODIN [Suspect]
     Indication: HEPATIC CANCER
     Route: 048
     Dates: start: 201303, end: 20130601

REACTIONS (2)
  - Death [Fatal]
  - Product quality issue [Unknown]
